FAERS Safety Report 16051202 (Version 1)
Quarter: 2019Q2

REPORT INFORMATION
  Report Type: Spontaneous
  Country: US (occurrence: US)
  Receive Date: 20190307
  Receipt Date: 20190307
  Transmission Date: 20190711
  Serious: Yes (Other)
  Sender: FDA-Public Use
  Company Number: None

PATIENT
  Age: 66 Year
  Sex: Female
  Weight: 63 kg

DRUGS (1)
  1. RECLAST [Suspect]
     Active Substance: ZOLEDRONIC ACID
     Dates: start: 20190305, end: 20190305

REACTIONS (9)
  - Headache [None]
  - Back pain [None]
  - Pain [None]
  - Flank pain [None]
  - Micturition frequency decreased [None]
  - Myalgia [None]
  - Chills [None]
  - Bone pain [None]
  - Nausea [None]

NARRATIVE: CASE EVENT DATE: 20190306
